FAERS Safety Report 5202174-1 (Version None)
Quarter: 2007Q1

REPORT INFORMATION
  Report Type: 
  Country: None (occurrence: None)
  Receive Date: 20070109
  Receipt Date: 20070102
  Transmission Date: 20070707
  Serious: Yes (Other)
  Sender: FDA-Public Use
  Company Number: 2007UW00306

PATIENT
  Age: 23 Year
  Sex: Male

DRUGS (3)
  1. ATACAND [Suspect]
     Indication: HYPERTENSION
     Route: 048
     Dates: start: 20060628
  2. TYLENOL [Concomitant]
     Dates: start: 20060601
  3. AMOXICILLIN [Concomitant]
     Dates: start: 20060601

REACTIONS (1)
  - HAIR GROWTH ABNORMAL [None]
